FAERS Safety Report 8166452-9 (Version None)
Quarter: 2012Q1

REPORT INFORMATION
  Report Type: 
  Country: None (occurrence: None)
  Receive Date: 20120227
  Receipt Date: 20110812
  Transmission Date: 20120608
  Serious: No
  Sender: FDA-Public Use
  Company Number: US-MYLANLABS-2011S1016831

PATIENT
  Age: 22 Year
  Sex: Male

DRUGS (5)
  1. ERYTHROMYCIN [Concomitant]
  2. ASCORBIC ACID [Concomitant]
  3. EPIDUO [Concomitant]
  4. AMNESTEEM [Suspect]
     Indication: ACNE
     Route: 048
     Dates: start: 20110630, end: 20110810
  5. CLINDAMYCIN [Concomitant]

REACTIONS (1)
  - FEELING ABNORMAL [None]
